FAERS Safety Report 6415965-6 (Version None)
Quarter: 2009Q4

REPORT INFORMATION
  Report Type: 
  Country: None (occurrence: None)
  Receive Date: 20091027
  Receipt Date: 20091022
  Transmission Date: 20100525
  Serious: Yes (Other)
  Sender: FDA-Public Use
  Company Number: B0599777A

PATIENT
  Sex: Female

DRUGS (2)
  1. SEROXAT [Suspect]
     Indication: DRUG USE FOR UNKNOWN INDICATION
     Route: 065
  2. PROZAC [Concomitant]
     Indication: DRUG USE FOR UNKNOWN INDICATION
     Route: 065

REACTIONS (17)
  - BALANCE DISORDER [None]
  - BIPOLAR I DISORDER [None]
  - BRUXISM [None]
  - DEPRESSION [None]
  - DRUG DEPENDENCE [None]
  - DRUG WITHDRAWAL SYNDROME [None]
  - DYSKINESIA [None]
  - HYPOMANIA [None]
  - MEMORY IMPAIRMENT [None]
  - MENTAL DISORDER [None]
  - NIGHTMARE [None]
  - PARAESTHESIA [None]
  - SELF ESTEEM DECREASED [None]
  - SUICIDAL IDEATION [None]
  - TINNITUS [None]
  - TOOTH FRACTURE [None]
  - VERTIGO [None]
